FAERS Safety Report 9538847 (Version 2)
Quarter: 2013Q4

REPORT INFORMATION
  Report Type: Report from Study
  Country: US (occurrence: US)
  Receive Date: 20130920
  Receipt Date: 20131021
  Transmission Date: 20140711
  Serious: Yes (Hospitalization)
  Sender: FDA-Public Use
  Company Number: US-SANOFI-AVENTIS-2013SA091624

PATIENT
  Age: 67 Year
  Sex: Male
  Weight: 69.4 kg

DRUGS (16)
  1. CABAZITAXEL [Suspect]
     Indication: PROSTATE CANCER
     Dosage: DOSE: 2.1905 MG
     Route: 042
     Dates: start: 20130517
  2. LACTULOSE [Concomitant]
     Indication: CONSTIPATION
  3. VIAGRA [Concomitant]
  4. PROCHLORPERAZINE MALEATE [Concomitant]
     Indication: NAUSEA
     Route: 048
  5. ZOMETA [Concomitant]
     Dosage: DOSE: 4 MG/5 ML
  6. TRELSTAR - SLOW RELEASE [Concomitant]
  7. PREDNISONE [Concomitant]
     Route: 048
  8. PROTONIX [Concomitant]
     Route: 048
  9. CALCIUM [Concomitant]
     Route: 048
  10. VITAMIN D [Concomitant]
  11. ISONIAZID [Concomitant]
     Route: 048
  12. FLEXERIL [Concomitant]
     Route: 048
  13. OXYCODONE [Concomitant]
     Indication: PAIN
  14. MIRTAZAPINE [Concomitant]
     Route: 048
  15. COLACE [Concomitant]
  16. SENNA [Concomitant]

REACTIONS (5)
  - Systemic inflammatory response syndrome [Recovered/Resolved]
  - Pneumonia [Not Recovered/Not Resolved]
  - Nausea [Recovered/Resolved]
  - Dehydration [Recovered/Resolved]
  - Vomiting [Recovered/Resolved]
